FAERS Safety Report 8907503 (Version 2)
Quarter: 2014Q4

REPORT INFORMATION
  Report Type: Spontaneous
  Country: PL (occurrence: PL)
  Receive Date: 20121114
  Receipt Date: 20141117
  Transmission Date: 20150529
  Serious: Yes (Life-Threatening, Hospitalization, Disabling, Other)
  Sender: FDA-Public Use
  Company Number: PL-PFIZER INC-2012280612

PATIENT
  Age: 58 Year
  Sex: Female
  Weight: 76 kg

DRUGS (2)
  1. SUTENT [Suspect]
     Active Substance: SUNITINIB MALATE
     Dosage: 37.5 MG/24H, CYCLIC
     Route: 048
     Dates: start: 20121017, end: 20121020
  2. SUTENT [Suspect]
     Active Substance: SUNITINIB MALATE
     Indication: RENAL CANCER STAGE IV
     Dosage: 50 MG/24H, CYCLIC
     Route: 048

REACTIONS (2)
  - Myocardial infarction [Recovered/Resolved with Sequelae]
  - Cardiomyopathy [Unknown]

NARRATIVE: CASE EVENT DATE: 20121020
